FAERS Safety Report 9456101 (Version 1)
Quarter: 2013Q3

REPORT INFORMATION
  Report Type: Spontaneous
  Country: US (occurrence: None)
  Receive Date: 20130812
  Receipt Date: 20130812
  Transmission Date: 20140515
  Serious: Yes (Death, Hospitalization)
  Sender: FDA-Public Use
  Company Number: None

PATIENT
  Age: 60 Year
  Sex: Male

DRUGS (5)
  1. PASIREOTIDE [Suspect]
     Indication: HEPATIC CANCER
     Dosage: 60 MG Q28 DAYS INTRAMUSCULAR
     Route: 030
     Dates: start: 20130516
  2. TRAMADOL [Concomitant]
  3. LACTULOSE [Concomitant]
  4. MAGNESIUM CITRATE [Concomitant]
  5. LASIX [Concomitant]

REACTIONS (5)
  - Gastrointestinal haemorrhage [None]
  - Hypoxia [None]
  - Varices oesophageal [None]
  - Respiratory failure [None]
  - Renal failure acute [None]
